FAERS Safety Report 5415011-7 (Version None)
Quarter: 2007Q3

REPORT INFORMATION
  Report Type: 
  Country: None (occurrence: None)
  Receive Date: 20070813
  Receipt Date: 20070731
  Transmission Date: 20080115
  Serious: Yes (Hospitalization)
  Sender: FDA-Public Use
  Company Number: 2007AL003090

PATIENT
  Age: 13 Year
  Sex: Male

DRUGS (2)
  1. DICLOFENAC [Suspect]
     Indication: POSTOPERATIVE ANALGESIA
     Dosage: 50 MG; Q8H; PO
     Route: 048
  2. DESMOPRESSIN ACETATE [Concomitant]

REACTIONS (2)
  - DIABETES INSIPIDUS [None]
  - RENAL IMPAIRMENT [None]
